FAERS Safety Report 9792632 (Version 1)
Quarter: 2014Q1

REPORT INFORMATION
  Report Type: Spontaneous
  Country: US (occurrence: US)
  Receive Date: 20140102
  Receipt Date: 20140102
  Transmission Date: 20141002
  Serious: No
  Sender: FDA-Public Use
  Company Number: US-SA-2013SA101840

PATIENT
  Age: 62 Year
  Sex: Male

DRUGS (7)
  1. AUBAGIO [Suspect]
     Indication: MULTIPLE SCLEROSIS
     Route: 048
     Dates: start: 20130927
  2. GABAPENTIN [Concomitant]
  3. FLOMAX [Concomitant]
  4. CYMBALTA [Concomitant]
  5. ULORIC [Concomitant]
  6. DIOVANE [Concomitant]
  7. ADVIL [Concomitant]

REACTIONS (1)
  - Diarrhoea [Recovered/Resolved]
